FAERS Safety Report 12503920 (Version 4)
Quarter: 2018Q2

REPORT INFORMATION
  Report Type: Spontaneous
  Country: US (occurrence: US)
  Receive Date: 20160628
  Receipt Date: 20180628
  Transmission Date: 20180711
  Serious: Yes (Death, Life-Threatening, Hospitalization, Other)
  Sender: FDA-Public Use
  Company Number: US-ELI_LILLY_AND_COMPANY-US201606008882

PATIENT
  Age: 64 Year
  Sex: Male
  Weight: 99.77 kg

DRUGS (11)
  1. AXIRON [Suspect]
     Active Substance: TESTOSTERONE
     Indication: ANDROGEN REPLACEMENT THERAPY
     Dosage: UNK UNK, QD
     Route: 065
     Dates: end: 201309
  2. ATORVASTATIN [Concomitant]
     Active Substance: ATORVASTATIN
     Indication: BLOOD CHOLESTEROL ABNORMAL
     Dosage: UNK, UNKNOWN
     Route: 065
     Dates: start: 201308, end: 201309
  3. ENALAPRIL MALEATE. [Concomitant]
     Active Substance: ENALAPRIL MALEATE
     Indication: HYPERTENSION
     Dosage: UNK, UNKNOWN
     Route: 065
     Dates: start: 201106, end: 201307
  4. ALEVE [Concomitant]
     Active Substance: NAPROXEN SODIUM
     Indication: ANALGESIC THERAPY
     Dosage: UNK, UNKNOWN
     Route: 065
     Dates: start: 20120808, end: 201209
  5. GARLIQUE [Concomitant]
     Active Substance: GARLIC
     Indication: SUPPLEMENTATION THERAPY
     Dosage: UNK, UNKNOWN
     Route: 065
     Dates: start: 20130213, end: 201303
  6. VIAGRA [Concomitant]
     Active Substance: SILDENAFIL CITRATE
     Indication: ERECTILE DYSFUNCTION
     Dosage: UNK, UNKNOWN
     Route: 065
     Dates: start: 201202, end: 201206
  7. ANDROGEL [Suspect]
     Active Substance: TESTOSTERONE
     Indication: ANDROGEN REPLACEMENT THERAPY
     Dosage: 2 DF, QD
     Route: 061
     Dates: start: 201207, end: 2013
  8. WARFARIN [Concomitant]
     Active Substance: WARFARIN
     Indication: BLOOD DISORDER
     Dosage: UNK, UNKNOWN
     Route: 065
     Dates: start: 201109, end: 201307
  9. FUROSEMIDE. [Concomitant]
     Active Substance: FUROSEMIDE
     Indication: HYPERTENSION
     Dosage: UNK, UNKNOWN
     Route: 065
     Dates: start: 201106, end: 201204
  10. CIALIS [Concomitant]
     Active Substance: TADALAFIL
     Indication: ERECTILE DYSFUNCTION
     Dosage: UNK, UNKNOWN
     Route: 065
     Dates: start: 201207, end: 201208
  11. CARVEDILOL. [Concomitant]
     Active Substance: CARVEDILOL
     Indication: HYPERTENSION
     Dosage: UNK, UNKNOWN
     Route: 065
     Dates: start: 201108, end: 201309

REACTIONS (8)
  - Renal failure [Fatal]
  - Basal ganglia haemorrhage [Fatal]
  - Cardiac failure [Unknown]
  - Thrombosis [Unknown]
  - Cerebrovascular accident [Unknown]
  - Deep vein thrombosis [Fatal]
  - Deep vein thrombosis [Unknown]
  - Respiratory failure [Unknown]

NARRATIVE: CASE EVENT DATE: 20130824
